FAERS Safety Report 19055850 (Version 1)
Quarter: 2021Q1

REPORT INFORMATION
  Report Type: Spontaneous
  Country: US (occurrence: US)
  Receive Date: 20210325
  Receipt Date: 20210325
  Transmission Date: 20210420
  Serious: No
  Sender: FDA-Public Use
  Company Number: US-BIOVITRUM-2021US1442

PATIENT
  Age: 6 Month
  Sex: Female
  Weight: 4 kg

DRUGS (7)
  1. SYNAGIS [Suspect]
     Active Substance: PALIVIZUMAB
     Indication: PREMATURE BABY
  2. MULTIVITAMIN [Concomitant]
     Active Substance: VITAMINS
     Dosage: 9 MG/15 ML LIQUID
  3. FAMOTIDINE. [Concomitant]
     Active Substance: FAMOTIDINE
  4. ACETAMINOPHEN. [Concomitant]
     Active Substance: ACETAMINOPHEN
  5. IRONUP [Concomitant]
     Dosage: 15MG/0.5ML DROPS
  6. SYNAGIS [Suspect]
     Active Substance: PALIVIZUMAB
     Indication: PULMONARY HYPERTENSION
     Dosage: SYNAGIS 100MG/1ML VL LIQUID
     Route: 030
  7. SYNAGIS [Suspect]
     Active Substance: PALIVIZUMAB
     Indication: BRONCHOPULMONARY DYSPLASIA

REACTIONS (4)
  - Fatigue [Unknown]
  - Irritability [Unknown]
  - Device leakage [Unknown]
  - Pyrexia [Unknown]

NARRATIVE: CASE EVENT DATE: 20210208
